FAERS Safety Report 20559740 (Version 2)
Quarter: 2022Q1

REPORT INFORMATION
  Report Type: Spontaneous
  Country: BE (occurrence: BE)
  Receive Date: 20220307
  Receipt Date: 20220317
  Transmission Date: 20220424
  Serious: Yes (Other)
  Sender: FDA-Public Use
  Company Number: BE-NOVARTISPH-NVSC2022BE051583

PATIENT
  Age: 71 Year
  Sex: Female

DRUGS (6)
  1. TOBRADEX [Suspect]
     Active Substance: DEXAMETHASONE\TOBRAMYCIN
     Indication: Postoperative care
     Dosage: 4 DF, QD
     Route: 065
  2. BSS [Suspect]
     Active Substance: CALCIUM CHLORIDE\MAGNESIUM CHLORIDE\POTASSIUM CHLORIDE\SODIUM ACETATE\SODIUM CHLORIDE\SODIUM CITRATE
     Indication: Product used for unknown indication
     Dosage: UNK (BAG)
     Route: 065
  3. TETRACAINE HYDROCHLORIDE [Suspect]
     Active Substance: TETRACAINE HYDROCHLORIDE
     Indication: Preoperative care
     Dosage: UNK
     Route: 065
  4. PHENYLEPHRINE HYDROCHLORIDE\TROPICAMIDE [Suspect]
     Active Substance: PHENYLEPHRINE HYDROCHLORIDE\TROPICAMIDE
     Indication: Preoperative care
     Dosage: UNK
     Route: 065
  5. BENOXINATE [Suspect]
     Active Substance: BENOXINATE
     Indication: Preoperative care
     Dosage: UNK
     Route: 065
  6. POVIDONE-IODINE [Suspect]
     Active Substance: POVIDONE-IODINE
     Indication: Preoperative care
     Dosage: UNK
     Route: 065

REACTIONS (4)
  - Toxic anterior segment syndrome [Recovering/Resolving]
  - Inflammation [Recovering/Resolving]
  - Aqueous fibrin [Recovering/Resolving]
  - Conjunctivitis [Recovering/Resolving]

NARRATIVE: CASE EVENT DATE: 20220209
